FAERS Safety Report 5532758-2 (Version None)
Quarter: 2007Q4

REPORT INFORMATION
  Report Type: 
  Country: None (occurrence: None)
  Receive Date: 20071204
  Receipt Date: 20071127
  Transmission Date: 20080405
  Serious: Yes (Other)
  Sender: FDA-Public Use
  Company Number: PHEH2007US02875

PATIENT
  Age: 56 Year
  Sex: Female

DRUGS (4)
  1. VIVELLE [Suspect]
     Indication: HORMONE REPLACEMENT THERAPY
     Dosage: 0.0375 MG/DAY
     Route: 062
     Dates: end: 20010101
  2. PREMPHASE 14/14 [Suspect]
     Indication: HORMONE REPLACEMENT THERAPY
     Dates: start: 19980101, end: 20000101
  3. PROVERA [Suspect]
     Indication: HORMONE REPLACEMENT THERAPY
     Dosage: 10 MG, UNK
     Route: 048
     Dates: start: 20000101, end: 20010101
  4. MEDROXYPROGESTERONE [Suspect]
     Indication: HORMONE REPLACEMENT THERAPY

REACTIONS (33)
  - ASPIRATION BREAST [None]
  - BENIGN LUNG NEOPLASM [None]
  - BIOPSY BREAST ABNORMAL [None]
  - BIOPSY MUCOSA ABNORMAL [None]
  - BREAST CANCER [None]
  - BREAST CANCER STAGE III [None]
  - BREAST DISCOMFORT [None]
  - BREAST MASS [None]
  - BREAST MICROCALCIFICATION [None]
  - BREAST TENDERNESS [None]
  - COLITIS [None]
  - FALL [None]
  - HAEMATOMA [None]
  - HYSTERECTOMY [None]
  - LYMPHADENOPATHY [None]
  - LYMPHOEDEMA [None]
  - MALIGNANT BREAST LUMP REMOVAL [None]
  - MAMMOGRAM ABNORMAL [None]
  - MASTECTOMY [None]
  - OCCULT BLOOD POSITIVE [None]
  - OEDEMA PERIPHERAL [None]
  - OESTROGEN RECEPTOR ASSAY POSITIVE [None]
  - OSTEOPENIA [None]
  - PAIN IN EXTREMITY [None]
  - PERIODONTAL OPERATION [None]
  - PERIODONTITIS [None]
  - POSTMENOPAUSAL HAEMORRHAGE [None]
  - PULMONARY MASS [None]
  - SCLEROTHERAPY [None]
  - SEROMA [None]
  - ULTRASOUND DOPPLER [None]
  - VARICOPHLEBITIS [None]
  - VEIN DISORDER [None]
